FAERS Safety Report 16382855 (Version 2)
Quarter: 2019Q4

REPORT INFORMATION
  Report Type: Report from Study
  Country: DE (occurrence: DE)
  Receive Date: 20190603
  Receipt Date: 20191226
  Transmission Date: 20200122
  Serious: Yes (Other)
  Sender: FDA-Public Use
  Company Number: DE-PFIZER INC-2019228637

PATIENT
  Age: 57 Year
  Sex: Male

DRUGS (4)
  1. COSENTYX [Suspect]
     Active Substance: SECUKINUMAB
     Indication: AXIAL SPONDYLOARTHRITIS
     Dosage: 150 MG, UNK
     Route: 065
     Dates: start: 20140101
  2. IBUPROFEN. [Suspect]
     Active Substance: IBUPROFEN
     Indication: AXIAL SPONDYLOARTHRITIS
     Dosage: 600 MG, 1X/DAY
     Route: 065
     Dates: end: 20140101
  3. COSENTYX [Suspect]
     Active Substance: SECUKINUMAB
     Dosage: 150 MG, MONTHLY
     Route: 065
     Dates: end: 20190214
  4. DICLOFENAC SODIUM. [Suspect]
     Active Substance: DICLOFENAC SODIUM
     Indication: AXIAL SPONDYLOARTHRITIS
     Dosage: 100 MG, WEEKLY (1 DAY PER WEEK)
     Route: 065
     Dates: end: 20190315

REACTIONS (3)
  - Rash [Unknown]
  - Nausea [Unknown]
  - Hepatic mass [Not Recovered/Not Resolved]

NARRATIVE: CASE EVENT DATE: 20190214
